FAERS Safety Report 16448882 (Version 1)
Quarter: 2019Q2

REPORT INFORMATION
  Report Type: Spontaneous
  Country: SI (occurrence: SI)
  Receive Date: 20190619
  Receipt Date: 20190619
  Transmission Date: 20190711
  Serious: Yes (Hospitalization, Other)
  Sender: FDA-Public Use
  Company Number: SI-LUPIN PHARMACEUTICALS INC.-2019-03751

PATIENT
  Age: 52 Year
  Sex: Female

DRUGS (3)
  1. DULOXETINE. [Interacting]
     Active Substance: DULOXETINE
     Dosage: 30 MILLIGRAM, QD
     Route: 065
  2. DULOXETINE. [Suspect]
     Active Substance: DULOXETINE
     Indication: MAJOR DEPRESSION
     Dosage: TITRATED FROM 30 MG TO 90 MG, QD
     Route: 065
  3. BUPROPION. [Interacting]
     Active Substance: BUPROPION
     Indication: MAJOR DEPRESSION
     Dosage: 300 MILLIGRAM, QD
     Route: 065

REACTIONS (6)
  - Loss of consciousness [Recovered/Resolved]
  - Toxicity to various agents [Unknown]
  - Sinus arrhythmia [Recovered/Resolved]
  - Long QT syndrome [Recovered/Resolved]
  - Palpitations [Recovered/Resolved]
  - Drug interaction [Unknown]
